FAERS Safety Report 19964939 (Version 1)
Quarter: 2021Q4

REPORT INFORMATION
  Report Type: Spontaneous
  Country: GR (occurrence: GR)
  Receive Date: 20211018
  Receipt Date: 20211018
  Transmission Date: 20220303
  Serious: No
  Sender: FDA-Public Use
  Company Number: GR-ORGANON-O2110GRC000968

PATIENT
  Age: 85 Year
  Sex: Female
  Weight: 60 kg

DRUGS (4)
  1. ELOCON [Suspect]
     Active Substance: MOMETASONE FUROATE
     Indication: Rash papular
     Dosage: FROM TIME TO TIME, ONCE A MONTH
  2. ELOCON [Suspect]
     Active Substance: MOMETASONE FUROATE
     Dosage: 6 DROPS, 3 TIMES A DAY FOR 6 TO 7 DAYS
  3. IRBESARTAN [Concomitant]
     Active Substance: IRBESARTAN
     Indication: Hypertension
     Dosage: HALF TABLET IN THE MORNING, HALF TABLET IN THE EVENING
  4. LERCADIP [LERCANIDIPINE] [Concomitant]
     Indication: Hypertension
     Dosage: WHEN THE BLOOD PRESSURE IS INCREASED OVER 15MMHG

REACTIONS (7)
  - Blood pressure increased [Recovered/Resolved]
  - Blood pressure increased [Recovered/Resolved]
  - Expired product administered [Unknown]
  - Product use in unapproved indication [Unknown]
  - Incorrect route of product administration [Unknown]
  - Prescribed overdose [Unknown]
  - Product prescribing error [Unknown]

NARRATIVE: CASE EVENT DATE: 20210901
